FAERS Safety Report 7439650-7 (Version None)
Quarter: 2011Q2

REPORT INFORMATION
  Report Type: 
  Country: None (occurrence: None)
  Receive Date: 20110427
  Receipt Date: 20110418
  Transmission Date: 20111010
  Serious: Yes (Other)
  Sender: FDA-Public Use
  Company Number: CA-TEVA-277861USA

PATIENT
  Age: 68 Year
  Sex: Female
  Weight: 64.014 kg

DRUGS (5)
  1. RISEDRONATE SODIUM [Suspect]
     Dosage: 5 MILLIGRAM;
     Route: 048
  2. RABEPRAZOLE SODIUM [Concomitant]
  3. CALCIUM WITH VITAMIN D [Concomitant]
  4. PERINDOPRIL [Concomitant]
  5. AMLODIPINE [Concomitant]

REACTIONS (4)
  - PAIN OF SKIN [None]
  - PRURITUS [None]
  - LIP SWELLING [None]
  - DRY SKIN [None]
